FAERS Safety Report 4381352-8 (Version None)
Quarter: 2004Q2

REPORT INFORMATION
  Report Type: 
  Country: None (occurrence: None)
  Receive Date: 20040617
  Receipt Date: 20040617
  Transmission Date: 20050107
  Serious: Yes (Death)
  Sender: FDA-Public Use
  Company Number: None

PATIENT
  Sex: Female
  Weight: 72.5755 kg

DRUGS (2)
  1. PLAQUENIL [Suspect]
     Indication: SJOGREN'S SYNDROME
     Dates: start: 20030701, end: 20040201
  2. EVOXAC [Concomitant]

REACTIONS (4)
  - BONE MARROW DEPRESSION [None]
  - MULTI-ORGAN FAILURE [None]
  - PNEUMONIA [None]
  - SEPTIC SHOCK [None]
